FAERS Safety Report 23210527 (Version 1)
Quarter: 2023Q4

REPORT INFORMATION
  Report Type: Report from Study
  Country: BR (occurrence: BR)
  Receive Date: 20231121
  Receipt Date: 20231121
  Transmission Date: 20240110
  Serious: Yes (Other)
  Sender: FDA-Public Use
  Company Number: BR-002147023-NVSC2023BR210886

PATIENT
  Sex: Female
  Weight: 64 kg

DRUGS (4)
  1. KISQALI [Suspect]
     Active Substance: RIBOCICLIB
     Indication: Breast cancer
     Dosage: UNK
     Route: 065
  2. KISQALI [Suspect]
     Active Substance: RIBOCICLIB
     Dosage: UNK (3 TABLETS PER DAY PAUSE 7 DAYS)
     Route: 048
     Dates: start: 202304
  3. PAROXETINE [Concomitant]
     Active Substance: PAROXETINE
     Indication: Anxiety
     Dosage: UNK, QD (1 TABLET)
     Route: 048
  4. VENAFLON [Concomitant]
     Indication: Circulatory collapse
     Dosage: UNK, QD (1 TABLET) (3 YEARS AGO)
     Route: 048

REACTIONS (2)
  - Fungal infection [Recovered/Resolved]
  - Blood calcium increased [Recovered/Resolved]
